FAERS Safety Report 19469953 (Version 1)
Quarter: 2021Q2

REPORT INFORMATION
  Report Type: Spontaneous
  Country: US (occurrence: US)
  Receive Date: 20210628
  Receipt Date: 20210628
  Transmission Date: 20210717
  Serious: No
  Sender: FDA-Public Use
  Company Number: US-BAYER-2021-165458

PATIENT
  Age: 47 Year
  Sex: Female

DRUGS (4)
  1. VESTURA [Suspect]
     Active Substance: DROSPIRENONE\ETHINYL ESTRADIOL
  2. NIKKI [Suspect]
     Active Substance: DROSPIRENONE\ETHINYL ESTRADIOL
  3. LORNA [Suspect]
     Active Substance: LORNOXICAM
  4. GIANVI [Suspect]
     Active Substance: DROSPIRENONE\ETHINYL ESTRADIOL
     Route: 048

REACTIONS (2)
  - Intermenstrual bleeding [Recovered/Resolved]
  - Abdominal pain lower [Recovered/Resolved]
